FAERS Safety Report 12140138 (Version 1)
Quarter: 2016Q1

REPORT INFORMATION
  Report Type: Report from Study
  Country: KR (occurrence: KR)
  Receive Date: 20160303
  Receipt Date: 20160303
  Transmission Date: 20160526
  Serious: Yes (Hospitalization)
  Sender: FDA-Public Use
  Company Number: KR-ELI_LILLY_AND_COMPANY-KR201602007384

PATIENT
  Age: 46 Year
  Sex: Male
  Weight: 59.3 kg

DRUGS (15)
  1. FOIPAN [Concomitant]
     Active Substance: CAMOSTAT MESYLATE
     Indication: ASPARTATE AMINOTRANSFERASE INCREASED
  2. PANTOLOC                           /01263204/ [Concomitant]
     Active Substance: PANTOPRAZOLE SODIUM
     Indication: PROPHYLAXIS AGAINST GASTROINTESTINAL ULCER
     Dosage: UNK
     Dates: start: 20151029
  3. URSA [Concomitant]
     Indication: BLOOD ALKALINE PHOSPHATASE INCREASED
     Dosage: UNK
     Dates: start: 20160127
  4. PACLITAXEL. [Concomitant]
     Active Substance: PACLITAXEL
     Indication: ADENOCARCINOMA GASTRIC
     Dosage: UNK
     Route: 065
     Dates: start: 20160119, end: 20160119
  5. FOIPAN [Concomitant]
     Active Substance: CAMOSTAT MESYLATE
     Indication: BLOOD ALKALINE PHOSPHATASE NORMAL
     Dosage: UNK
     Dates: start: 20160201
  6. FOIPAN [Concomitant]
     Active Substance: CAMOSTAT MESYLATE
     Indication: ALANINE AMINOTRANSFERASE INCREASED
  7. CYRAMZA [Suspect]
     Active Substance: RAMUCIRUMAB
     Indication: ADENOCARCINOMA GASTRIC
     Dosage: 8 MG/KG, EVERY 2 WEEKS
     Route: 042
     Dates: start: 20151016
  8. URSA [Concomitant]
     Indication: ALANINE AMINOTRANSFERASE INCREASED
  9. FEROBA U [Concomitant]
     Indication: ANAEMIA
     Dosage: UNK
     Dates: start: 20151029
  10. DOMPIL [Concomitant]
     Indication: DYSPEPSIA
     Dosage: UNK UNK, PRN
     Dates: start: 20160131
  11. GODEX [Concomitant]
     Indication: BLOOD ALKALINE PHOSPHATASE INCREASED
     Dosage: UNK
     Dates: start: 20160127
  12. GODEX [Concomitant]
     Indication: ASPARTATE AMINOTRANSFERASE INCREASED
  13. GODEX [Concomitant]
     Indication: ALANINE AMINOTRANSFERASE INCREASED
  14. URSA [Concomitant]
     Indication: ASPARTATE AMINOTRANSFERASE INCREASED
  15. TANTUM                             /00052302/ [Concomitant]
     Indication: PROPHYLAXIS
     Dosage: UNK
     Dates: start: 20160127

REACTIONS (2)
  - Abdominal pain [Recovered/Resolved]
  - Decreased appetite [Unknown]

NARRATIVE: CASE EVENT DATE: 20160209
